FAERS Safety Report 8197090 (Version 2)
Quarter: 2020Q3

REPORT INFORMATION
  Report Type: Spontaneous
  Country: FR (occurrence: FR)
  Receive Date: 20111024
  Receipt Date: 20111107
  Transmission Date: 20201105
  Serious: Yes (Death, Life-Threatening, Other)
  Sender: FDA-Public Use
  Company Number: FR-ASTRAZENECA-2011SE62766

PATIENT
  Age: 28495 Day
  Sex: Male

DRUGS (11)
  1. SUFENTA [Suspect]
     Active Substance: SUFENTANIL CITRATE
     Dosage: ONCE/SINGLE ADMINISTRATION
     Route: 042
     Dates: start: 20101116, end: 20101116
  2. ADRENALINE [Concomitant]
     Active Substance: EPINEPHRINE
     Dates: start: 20101116, end: 20101116
  3. DIPRIVAN [Suspect]
     Active Substance: PROPOFOL
     Indication: ANAESTHESIA
     Route: 042
     Dates: start: 20100927, end: 20100927
  4. PHENYLEPHRINE [Suspect]
     Active Substance: PHENYLEPHRINE HYDROCHLORIDE
     Indication: RESUSCITATION
     Route: 042
     Dates: start: 20100927, end: 20100927
  5. NIMBEX [Suspect]
     Active Substance: CISATRACURIUM BESYLATE
     Dosage: ONCE/SINGLE ADMINISTRATION
     Route: 042
     Dates: start: 20101116, end: 20101116
  6. ATROPINE. [Concomitant]
     Active Substance: ATROPINE
     Dates: start: 20101116, end: 20101116
  7. DIPRIVAN [Suspect]
     Active Substance: PROPOFOL
     Dosage: ONCE/SINGLE ADMINISTRATION
     Route: 042
     Dates: start: 20101116, end: 20101116
  8. SUFENTA [Suspect]
     Active Substance: SUFENTANIL CITRATE
     Indication: ANAESTHESIA
     Route: 042
     Dates: start: 20100927, end: 20100927
  9. EPHEDRINE. [Suspect]
     Active Substance: EPHEDRINE
     Indication: RESUSCITATION
     Route: 042
     Dates: start: 20100927, end: 20100927
  10. NIMBEX [Suspect]
     Active Substance: CISATRACURIUM BESYLATE
     Indication: ANAESTHESIA
     Route: 042
     Dates: start: 20100927, end: 20100927
  11. ETOMIDATE. [Concomitant]
     Active Substance: ETOMIDATE
     Dates: start: 20101116, end: 20101116

REACTIONS (5)
  - Anaphylactic shock [Fatal]
  - Cardio-respiratory arrest [Fatal]
  - Cardiogenic shock [None]
  - Vasoplegia syndrome [None]
  - Hypotension [Fatal]

NARRATIVE: CASE EVENT DATE: 20100927
